FAERS Safety Report 14278248 (Version 6)
Quarter: 2018Q2

REPORT INFORMATION
  Report Type: Spontaneous
  Country: ES (occurrence: ES)
  Receive Date: 20171212
  Receipt Date: 20180503
  Transmission Date: 20180711
  Serious: Yes (Life-Threatening, Other)
  Sender: FDA-Public Use
  Company Number: PHHY2017ES182740

PATIENT
  Age: 5 Year
  Sex: Male

DRUGS (3)
  1. DEXAMETHASONE. [Suspect]
     Active Substance: DEXAMETHASONE
     Indication: ENDOTRACHEAL INTUBATION
  2. DEXAMETHASONE. [Suspect]
     Active Substance: DEXAMETHASONE
     Indication: ACUTE KIDNEY INJURY
     Dosage: 1.8 MG, UNK
     Route: 065
  3. RASBURICASE [Concomitant]
     Active Substance: RASBURICASE
     Indication: ACUTE KIDNEY INJURY
     Dosage: UNK
     Route: 065

REACTIONS (3)
  - Ventricular tachycardia [Recovered/Resolved]
  - Product use in unapproved indication [Unknown]
  - Hyperkalaemia [Recovered/Resolved]
